FAERS Safety Report 4917398-8 (Version None)
Quarter: 2006Q1

REPORT INFORMATION
  Report Type: 
  Country: None (occurrence: None)
  Receive Date: 20060221
  Receipt Date: 20060209
  Transmission Date: 20060701
  Serious: Yes (Hospitalization)
  Sender: FDA-Public Use
  Company Number: FR-GLAXOSMITHKLINE-B0412673A

PATIENT
  Age: 42 Year
  Sex: Female
  Weight: 83 kg

DRUGS (7)
  1. SERETIDE DISKUS [Suspect]
     Indication: COUGH
     Dosage: 2PUFF TWICE PER DAY
     Route: 055
     Dates: start: 20051104, end: 20060117
  2. KALETRA [Suspect]
     Indication: HIV INFECTION
     Route: 048
  3. OXEOL [Suspect]
     Indication: COUGH
     Dosage: 10MG AT NIGHT
     Route: 048
     Dates: start: 20051104, end: 20051101
  4. EPIVIR [Concomitant]
     Indication: HIV INFECTION
  5. ZERIT [Concomitant]
     Indication: HIV INFECTION
  6. COTAREG [Concomitant]
  7. SINGULAIR [Concomitant]
     Indication: COUGH
     Dosage: 10MG PER DAY
     Dates: start: 20051104

REACTIONS (13)
  - AFFECTIVE DISORDER [None]
  - ARRHYTHMIA [None]
  - BLOOD CORTISOL DECREASED [None]
  - BLOOD PRESSURE INCREASED [None]
  - CUSHING'S SYNDROME [None]
  - CUSHINGOID [None]
  - DRUG INTERACTION [None]
  - HYPERTRICHOSIS [None]
  - LOSS OF CONSCIOUSNESS [None]
  - PAIN OF SKIN [None]
  - SKIN STRIAE [None]
  - SLEEP DISORDER [None]
  - URINARY INCONTINENCE [None]
